FAERS Safety Report 14879621 (Version 1)
Quarter: 2018Q2

REPORT INFORMATION
  Report Type: Spontaneous
  Country: DE (occurrence: DE)
  Receive Date: 20180511
  Receipt Date: 20180511
  Transmission Date: 20180711
  Serious: Yes (Hospitalization)
  Sender: FDA-Public Use
  Company Number: DE-SUN PHARMACEUTICAL INDUSTRIES LTD-2018R1-172531

PATIENT
  Age: 37 Year
  Sex: Male

DRUGS (3)
  1. FLUPIRTINE [Suspect]
     Active Substance: FLUPIRTINE
     Indication: MUSCULOSKELETAL DISORDER
     Dosage: ()
     Route: 065
  2. IBUPROFEN. [Suspect]
     Active Substance: IBUPROFEN
     Indication: PRODUCT USED FOR UNKNOWN INDICATION
     Dosage: UNK
     Route: 065
  3. FLUPIRTINE [Suspect]
     Active Substance: FLUPIRTINE
     Indication: BACK PAIN
     Dosage: 400 (UNIT NOT STATED)
     Route: 065

REACTIONS (2)
  - Jaundice [Recovered/Resolved]
  - Drug-induced liver injury [Recovering/Resolving]
